FAERS Safety Report 5302867-1 (Version None)
Quarter: 2007Q2

REPORT INFORMATION
  Report Type: 
  Country: None (occurrence: None)
  Receive Date: 20070419
  Receipt Date: 20070419
  Transmission Date: 20071010
  Serious: Yes (Hospitalization)
  Sender: FDA-Public Use
  Company Number: None

PATIENT
  Age: 41 Year
  Sex: Female

DRUGS (1)
  1. CHOLETEC [Suspect]
     Indication: CHOLECYSTITIS
     Dates: start: 20070410, end: 20070410

REACTIONS (8)
  - ABDOMINAL PAIN UPPER [None]
  - BLOOD PRESSURE DIASTOLIC DECREASED [None]
  - BODY TEMPERATURE INCREASED [None]
  - CHILLS [None]
  - DIZZINESS [None]
  - NAUSEA [None]
  - PYREXIA [None]
  - TREMOR [None]
